FAERS Safety Report 15943534 (Version 2)
Quarter: 2019Q3

REPORT INFORMATION
  Report Type: Report from Study
  Country: FR (occurrence: FR)
  Receive Date: 20190210
  Receipt Date: 20190824
  Transmission Date: 20191004
  Serious: Yes (Death)
  Sender: FDA-Public Use
  Company Number: PHHY2018FR087232

PATIENT
  Sex: Male
  Weight: 114 kg

DRUGS (1)
  1. VOTRIENT [Suspect]
     Active Substance: PAZOPANIB HYDROCHLORIDE
     Indication: RENAL CANCER METASTATIC
     Dosage: 800 MG, QD
     Route: 048
     Dates: start: 20180711

REACTIONS (4)
  - Metastases to peritoneum [Fatal]
  - Metastases to pleura [Fatal]
  - Renal cancer metastatic [Fatal]
  - Malignant neoplasm progression [Fatal]
